FAERS Safety Report 10082695 (Version 1)
Quarter: 2014Q2

REPORT INFORMATION
  Report Type: Spontaneous
  Country: US (occurrence: US)
  Receive Date: 20140416
  Receipt Date: 20140416
  Transmission Date: 20141212
  Serious: Yes (Hospitalization)
  Sender: FDA-Public Use
  Company Number: US-B.I. PHARMACEUTICALS,INC./RIDGEFIELD-2014-BI-16717BP

PATIENT
  Age: 75 Year
  Sex: Female
  Weight: 73 kg

DRUGS (13)
  1. SPIRIVA [Suspect]
     Indication: CHRONIC OBSTRUCTIVE PULMONARY DISEASE
     Dosage: 18 MCG
     Route: 055
     Dates: start: 2013
  2. LORAZEPAM [Concomitant]
     Indication: BIPOLAR I DISORDER
     Dosage: 1 MG
     Route: 048
  3. SEROQUEL [Concomitant]
     Indication: BIPOLAR I DISORDER
     Dosage: 600 MG
     Route: 048
  4. LEXAPRO [Concomitant]
     Indication: BIPOLAR I DISORDER
     Dosage: 30 MG
     Route: 048
  5. LEVOTHYROXINE [Concomitant]
     Indication: THYROIDECTOMY
     Dosage: 112 MCG
     Route: 048
  6. DOXYCYCLINE [Concomitant]
     Indication: ACNE
     Dosage: 200 MG
     Route: 065
  7. LICOCAINE PATCH 0.5 % [Concomitant]
     Indication: BACK PAIN
     Dosage: FORMULATION: PATCH
     Route: 061
  8. DEPAKOTE [Concomitant]
     Indication: BIPOLAR I DISORDER
     Dosage: 1000 MG
     Route: 048
  9. PLAVIX [Concomitant]
     Indication: CARDIAC DISORDER
     Dosage: 75 MG
     Route: 048
  10. TOPAMAX [Concomitant]
     Indication: MIGRAINE
     Dosage: 150 MG
     Route: 048
  11. LYRICA [Concomitant]
     Indication: FIBROMYALGIA
     Dosage: 150 MG
     Route: 048
  12. ANTIVERT [Concomitant]
     Indication: VERTIGO
     Dosage: 25 MG
     Route: 048
  13. ZYRTEC [Concomitant]
     Indication: SEASONAL ALLERGY
     Dosage: 10 MG
     Route: 048

REACTIONS (5)
  - Dyspnoea [Recovered/Resolved]
  - Pyrexia [Recovered/Resolved]
  - Chills [Recovered/Resolved]
  - Decreased appetite [Recovered/Resolved]
  - Abnormal loss of weight [Recovered/Resolved]
